FAERS Safety Report 5787482-8 (Version None)
Quarter: 2008Q2

REPORT INFORMATION
  Report Type: 
  Country: None (occurrence: None)
  Receive Date: 20080620
  Receipt Date: 20080606
  Transmission Date: 20081010
  Serious: Yes (Hospitalization)
  Sender: FDA-Public Use
  Company Number: 2008AL004402

PATIENT
  Age: 82 Year
  Sex: Female
  Weight: 64.8644 kg

DRUGS (1)
  1. DIGOXIN [Suspect]
     Dosage: 0.125 MG, DAILY BID, PO
     Route: 048

REACTIONS (3)
  - ANGINA PECTORIS [None]
  - HEART RATE DECREASED [None]
  - MYOCARDIAL INFARCTION [None]
